FAERS Safety Report 7525388-4 (Version None)
Quarter: 2011Q2

REPORT INFORMATION
  Report Type: 
  Country: None (occurrence: None)
  Receive Date: 20110606
  Receipt Date: 20110531
  Transmission Date: 20111010
  Serious: Yes (Hospitalization, Other)
  Sender: FDA-Public Use
  Company Number: US-ROCHE-758142

PATIENT
  Sex: Female
  Weight: 61.2 kg

DRUGS (3)
  1. PAXIL [Concomitant]
  2. ACCUTANE [Suspect]
     Indication: ACNE
     Route: 065
     Dates: start: 19981101, end: 19990301
  3. ACCUTANE [Suspect]
     Route: 065
     Dates: start: 19990801, end: 20000401

REACTIONS (10)
  - IRRITABLE BOWEL SYNDROME [None]
  - ILEUS [None]
  - OSTEOPENIA [None]
  - ILEUS PARALYTIC [None]
  - COLITIS ULCERATIVE [None]
  - PULMONARY EMBOLISM [None]
  - INFLAMMATORY BOWEL DISEASE [None]
  - DEPRESSION [None]
  - INTESTINAL OBSTRUCTION [None]
  - GASTROINTESTINAL HAEMORRHAGE [None]
